FAERS Safety Report 18326833 (Version 2)
Quarter: 2022Q3

REPORT INFORMATION
  Report Type: Spontaneous
  Country: AR (occurrence: AR)
  Receive Date: 20200929
  Receipt Date: 20220823
  Transmission Date: 20221027
  Serious: No
  Sender: FDA-Public Use
  Company Number: AR-NOVARTISPH-NVSC2020AR262009

PATIENT
  Sex: Female

DRUGS (1)
  1. GLIVEC [Suspect]
     Active Substance: IMATINIB MESYLATE
     Indication: Chronic myeloid leukaemia
     Dosage: 400 MG (1 X 400MG TABLET)
     Route: 065

REACTIONS (2)
  - Nausea [Recovering/Resolving]
  - Fatigue [Recovering/Resolving]
